FAERS Safety Report 9631117 (Version 1)
Quarter: 2013Q4

REPORT INFORMATION
  Report Type: Spontaneous
  Country: IN (occurrence: None)
  Receive Date: 20131011
  Receipt Date: 20131011
  Transmission Date: 20140711
  Serious: Yes (Other)
  Sender: FDA-Public Use
  Company Number: B0928779A

PATIENT
  Sex: Male

DRUGS (9)
  1. LAMIVUDINE [Suspect]
     Indication: HIV INFECTION
     Dates: start: 200106
  2. ZIDOVUDINE [Suspect]
     Indication: HIV INFECTION
  3. NELFINAVIR MESILATE [Suspect]
     Indication: HIV INFECTION
  4. DIDANOSINE [Suspect]
     Indication: HIV INFECTION
     Dosage: PER DAY
  5. LOPINAVIR + RITONAVIR [Suspect]
     Indication: HIV INFECTION
  6. NEVIRAPINE [Suspect]
     Indication: HIV INFECTION
  7. STAVUDINE [Suspect]
     Indication: HIV INFECTION
     Dates: start: 2005
  8. EMTRICITABINE [Suspect]
     Indication: HIV INFECTION
  9. TENOFOVIR [Suspect]
     Indication: HIV INFECTION

REACTIONS (1)
  - Treatment failure [None]
